FAERS Safety Report 26041216 (Version 1)
Quarter: 2025Q4

REPORT INFORMATION
  Report Type: Spontaneous
  Country: EU (occurrence: EU)
  Receive Date: 20251113
  Receipt Date: 20251113
  Transmission Date: 20260117
  Serious: Yes (Other)
  Sender: PFIZER
  Company Number: EU-PFIZER INC-202500218235

PATIENT
  Sex: Female

DRUGS (1)
  1. CYTOTEC [Suspect]
     Active Substance: MISOPROSTOL
     Indication: Labour induction
     Dosage: UNK
     Route: 064
     Dates: start: 2017

REACTIONS (5)
  - Foetal exposure during delivery [Recovered/Resolved]
  - Dependence on respirator [Recovered/Resolved]
  - Foetal heart rate abnormal [Recovered/Resolved]
  - Blood product transfusion dependent [Recovered/Resolved]
  - Off label use [Unknown]
